FAERS Safety Report 21749457 (Version 1)
Quarter: 2022Q4

REPORT INFORMATION
  Report Type: Report from Study
  Country: CN (occurrence: CN)
  Receive Date: 20221219
  Receipt Date: 20221219
  Transmission Date: 20230113
  Serious: Yes (Hospitalization, Other)
  Sender: FDA-Public Use
  Company Number: CN-TAKEDA-2022TUS096967

PATIENT
  Age: 28 Year
  Sex: Male
  Weight: 58 kg

DRUGS (2)
  1. VEDOLIZUMAB [Suspect]
     Active Substance: VEDOLIZUMAB
     Indication: Colitis ulcerative
     Dosage: 300 MILLIGRAM
     Route: 042
     Dates: start: 20221025
  2. BACILLUS LICHENIFORMIS CAPSULE,LIVE [Concomitant]
     Indication: Inflammatory bowel disease
     Dosage: 0.5 GRAM, TID
     Route: 048
     Dates: start: 20221114

REACTIONS (1)
  - Colitis ulcerative [Recovered/Resolved]

NARRATIVE: CASE EVENT DATE: 20221029
